FAERS Safety Report 4640181-8 (Version None)
Quarter: 2005Q2

REPORT INFORMATION
  Report Type: 
  Country: None (occurrence: None)
  Receive Date: 20050419
  Receipt Date: 20050419
  Transmission Date: 20051028
  Serious: Yes (Death)
  Sender: FDA-Public Use
  Company Number: None

PATIENT
  Sex: Female
  Weight: 55.3388 kg

DRUGS (4)
  1. AVASTIN [Suspect]
  2. OXALIPLATIN [Suspect]
  3. FLUOROURACIL [Suspect]
  4. LEUCOVORIN CALCIUM [Suspect]

REACTIONS (2)
  - COLORECTAL CANCER [None]
  - DISEASE PROGRESSION [None]
